FAERS Safety Report 8966398 (Version 2)
Quarter: 2012Q4

REPORT INFORMATION
  Report Type: 
  Country: BR (occurrence: BR)
  Receive Date: 20121214
  Receipt Date: 20121221
  Transmission Date: 20130627
  Serious: Yes (Hospitalization)
  Sender: FDA-Public Use
  Company Number: BR-GLAXOSMITHKLINE-A1005427A

PATIENT
  Age: 78 Year
  Sex: Male
  Weight: 60 kg

DRUGS (2)
  1. SERETIDE [Suspect]
     Indication: CHRONIC OBSTRUCTIVE PULMONARY DISEASE
     Dosage: 2PUFF Twice per day
     Route: 065
     Dates: start: 201210, end: 20121208
  2. DOXAZOSIN MESILATE [Suspect]
     Indication: CHRONIC OBSTRUCTIVE PULMONARY DISEASE
     Route: 065
     Dates: start: 201210, end: 20121208

REACTIONS (3)
  - Chronic obstructive pulmonary disease [Unknown]
  - Drug ineffective [Unknown]
  - Tachycardia [Recovered/Resolved]
